FAERS Safety Report 19768197 (Version 1)
Quarter: 2021Q3

REPORT INFORMATION
  Report Type: Spontaneous
  Country: US (occurrence: US)
  Receive Date: 20210827
  Receipt Date: 20210827
  Transmission Date: 20211014
  Serious: No
  Sender: FDA-Public Use
  Company Number: None

PATIENT
  Sex: Female

DRUGS (1)
  1. HUMIRA [Suspect]
     Active Substance: ADALIMUMAB
     Indication: ILLNESS
     Dosage: OTHER FREQUENCY:EVERY 14 DAYS ;?
     Route: 058
     Dates: start: 202003

REACTIONS (1)
  - Hypersensitivity [None]
